FAERS Safety Report 8250223-9 (Version None)
Quarter: 2012Q2

REPORT INFORMATION
  Report Type: 
  Country: None (occurrence: None)
  Receive Date: 20120402
  Receipt Date: 20120312
  Transmission Date: 20120825
  Serious: Yes (Hospitalization)
  Sender: FDA-Public Use
  Company Number: CN-BAYER-2012-031401

PATIENT
  Age: 2 Year
  Sex: Female

DRUGS (1)
  1. ULTRAVIST 150 [Suspect]
     Indication: COMPUTERISED TOMOGRAM
     Dosage: 27 ML, ONCE
     Route: 042
     Dates: start: 20120312, end: 20120312

REACTIONS (3)
  - INJECTION SITE EXTRAVASATION [None]
  - SKIN NECROSIS [None]
  - INJECTION SITE SWELLING [None]
